FAERS Safety Report 5856858-2 (Version None)
Quarter: 2008Q3

REPORT INFORMATION
  Report Type: 
  Country: None (occurrence: None)
  Receive Date: 20080822
  Receipt Date: 20080822
  Transmission Date: 20090109
  Serious: Yes (Hospitalization)
  Sender: FDA-Public Use
  Company Number: None

PATIENT
  Sex: Female
  Weight: 52 kg

DRUGS (2)
  1. CISPLATIN [Suspect]
     Dosage: 109 MG
  2. TAXOTERE [Suspect]
     Dosage: 110 MG

REACTIONS (8)
  - ABSCESS [None]
  - ANAEMIA [None]
  - CONDITION AGGRAVATED [None]
  - DEHYDRATION [None]
  - DIARRHOEA [None]
  - PNEUMONIA [None]
  - RECTAL OBSTRUCTION [None]
  - SMALL INTESTINAL OBSTRUCTION [None]
